FAERS Safety Report 6529663-1 (Version None)
Quarter: 2010Q1

REPORT INFORMATION
  Report Type: 
  Country: None (occurrence: None)
  Receive Date: 20100107
  Receipt Date: 20100104
  Transmission Date: 20100710
  Serious: Yes (Hospitalization, Other)
  Sender: FDA-Public Use
  Company Number: FR-ROCHE-674647

PATIENT
  Sex: Female
  Weight: 49.6 kg

DRUGS (7)
  1. BEVACIZUMAB [Suspect]
     Indication: SARCOMA
     Dosage: FORM REPORTED AS: 7.5 MG/KG.  LAST DOSE PRIOR TO SAE: 19 DECEMBER 2009
     Route: 042
     Dates: start: 20091128
  2. DOXORUBICIN HCL [Suspect]
     Indication: SARCOMA
     Dosage: FORM: 30MG/M2. LAST DOSE PRIOR TO SAE: 20 DEC 2009.
     Route: 042
     Dates: start: 20091128
  3. ACTINOMYCIN D [Suspect]
     Indication: SARCOMA
     Dosage: FORM: 1.5 MG/M2. LAST DOSE PRIOR TO SAE: 19 DEC 2009
     Route: 042
     Dates: start: 20091128
  4. VINCRISTINE [Suspect]
     Indication: SARCOMA
     Dosage: FORM: 1.5 MG/M2.  LAST DOSE PRIOR TO SAE: 26 DECEMBER 2009
     Route: 042
     Dates: start: 20091128, end: 20100102
  5. IFOSFAMIDE [Suspect]
     Indication: SARCOMA
     Dosage: DOSE FORM: 6G/M2, LAST DOSE PRIOR TO SAE: 20 DEC 2009
     Route: 042
     Dates: start: 20091128
  6. SULFAMETHOXAZOLE [Concomitant]
     Dates: start: 20091130
  7. ZOPHREN [Concomitant]
     Dates: start: 20091204

REACTIONS (4)
  - FEBRILE NEUTROPENIA [None]
  - PNEUMOTHORAX [None]
  - VOMITING [None]
  - WEIGHT DECREASED [None]
